FAERS Safety Report 20058818 (Version 1)
Quarter: 2021Q4

REPORT INFORMATION
  Report Type: Spontaneous
  Country: US (occurrence: US)
  Receive Date: 20211111
  Receipt Date: 20211111
  Transmission Date: 20220303
  Serious: Yes (Other)
  Sender: FDA-Public Use
  Company Number: US-PRECISION DOSE, INC.-2021PRD00006

PATIENT
  Age: 32 Year
  Sex: Male
  Weight: 88 kg

DRUGS (4)
  1. DEXMEDETOMIDINE [Suspect]
     Active Substance: DEXMEDETOMIDINE
     Indication: Wean from ventilator
     Dosage: 0.2 MCG/KG/HR
     Route: 065
  2. DEXMEDETOMIDINE [Suspect]
     Active Substance: DEXMEDETOMIDINE
     Dosage: 0.8 MCG/KG/HR
     Route: 065
  3. FENTANYL [Concomitant]
     Active Substance: FENTANYL
     Route: 042
  4. VASOPRESSIN [Concomitant]
     Active Substance: VASOPRESSIN
     Dosage: 0.02 UNITS/MIN
     Route: 065

REACTIONS (2)
  - Diabetes insipidus [Recovered/Resolved]
  - Torsade de pointes [Recovered/Resolved]
